FAERS Safety Report 6444746-2 (Version None)
Quarter: 2009Q4

REPORT INFORMATION
  Report Type: 
  Country: None (occurrence: None)
  Receive Date: 20091118
  Receipt Date: 20091112
  Transmission Date: 20100525
  Serious: Yes (Hospitalization)
  Sender: FDA-Public Use
  Company Number: B0576933A

PATIENT
  Sex: Male

DRUGS (1)
  1. SERETIDE DISKUS [Suspect]
     Indication: DRUG USE FOR UNKNOWN INDICATION
     Route: 055

REACTIONS (3)
  - ASTHENIA [None]
  - BLOOD CORTISOL DECREASED [None]
  - BLOOD GROWTH HORMONE DECREASED [None]
